FAERS Safety Report 12402934 (Version 1)
Quarter: 2016Q2

REPORT INFORMATION
  Report Type: Spontaneous
  Country: FR (occurrence: FR)
  Receive Date: 20160525
  Receipt Date: 20160525
  Transmission Date: 20160815
  Serious: Yes (Hospitalization, Other)
  Sender: FDA-Public Use
  Company Number: FR-PFIZER INC-2016267416

PATIENT
  Age: 56 Year
  Sex: Male

DRUGS (2)
  1. LYRICA [Suspect]
     Active Substance: PREGABALIN
     Dosage: UNK
  2. COLCHIMAX (FRANCE) [Concomitant]
     Active Substance: COLCHICINE\OPIUM, POWDERED\TIEMONIUM

REACTIONS (2)
  - Diabetes mellitus inadequate control [Unknown]
  - Pancreatitis acute [Recovered/Resolved]
